FAERS Safety Report 5238085-5 (Version None)
Quarter: 2007Q1

REPORT INFORMATION
  Report Type: 
  Country: None (occurrence: None)
  Receive Date: 20070209
  Receipt Date: 20070209
  Transmission Date: 20070707
  Serious: No
  Sender: FDA-Public Use
  Company Number: None

PATIENT
  Sex: Male
  Weight: 95.2554 kg

DRUGS (1)
  1. ZINCUM GLUCONICUM NASAL GEL [Suspect]
     Indication: NASOPHARYNGITIS
     Route: 045
     Dates: start: 20070128, end: 20070202

REACTIONS (2)
  - DYSGEUSIA [None]
  - PAROSMIA [None]
